FAERS Safety Report 21442463 (Version 28)
Quarter: 2023Q4

REPORT INFORMATION
  Report Type: Spontaneous
  Country: CA (occurrence: CA)
  Receive Date: 20221011
  Receipt Date: 20231229
  Transmission Date: 20240110
  Serious: Yes (Death, Life-Threatening, Hospitalization, Disabling, Other)
  Sender: FDA-Public Use
  Company Number: CA-BAUSCH-BL-2017-018617

PATIENT
  Age: 44 Year
  Sex: Female
  Weight: 97 kg

DRUGS (10)
  1. PHENYLEPHRINE HYDROCHLORIDE [Suspect]
     Active Substance: PHENYLEPHRINE HYDROCHLORIDE
     Indication: Product used for unknown indication
     Route: 065
  2. TRIAMCINOLONE ACETONIDE [Suspect]
     Active Substance: TRIAMCINOLONE ACETONIDE
     Indication: Rheumatoid arthritis
     Route: 014
  3. DICLOFENAC SODIUM [Suspect]
     Active Substance: DICLOFENAC\DICLOFENAC SODIUM
     Indication: Product used for unknown indication
     Dosage: 1. UNK,1.5 MG, 1 IN 1 DAY?2. TABLET?3. 50 MG?4. ORAL
     Route: 047
  4. DEVICE [Suspect]
     Active Substance: DEVICE
     Indication: Product used for unknown indication
     Dosage: 1.UNKNOWN
     Route: 047
  5. HYDROCORTISONE [Suspect]
     Active Substance: HYDROCORTISONE
     Indication: Rheumatoid arthritis
     Route: 048
  6. HYDROCORTISONE [Suspect]
     Active Substance: HYDROCORTISONE
     Route: 003
  7. TRAMADOL HYDROCHLORIDE [Suspect]
     Active Substance: TRAMADOL HYDROCHLORIDE
     Indication: Product used for unknown indication
     Route: 065
  8. HYDROCORTISONE ACETATE [Suspect]
     Active Substance: HYDROCORTISONE ACETATE
     Indication: Rheumatoid arthritis
     Dosage: 1. TABLET, ORAL?2.UNKNOWN, 25 MG, 1 IN 1DAY?3.TOPICAL, 25 MG
     Route: 065
  9. DILTIAZEM HYDROCHLORIDE [Suspect]
     Active Substance: DILTIAZEM HYDROCHLORIDE
     Indication: Product used for unknown indication
     Dosage: DILTIAZEM
     Route: 065
  10. ERYTHROMYCIN [Suspect]
     Active Substance: ERYTHROMYCIN
     Indication: Product used for unknown indication
     Route: 065

REACTIONS (66)
  - Condition aggravated [Fatal]
  - Pemphigus [Fatal]
  - Systemic lupus erythematosus [Fatal]
  - Osteoporosis [Fatal]
  - Laryngitis [Fatal]
  - Infusion related reaction [Fatal]
  - Exostosis [Fatal]
  - Rheumatoid arthritis [Fatal]
  - General physical health deterioration [Fatal]
  - Visual impairment [Fatal]
  - Crohn^s disease [Fatal]
  - Hypercholesterolaemia [Fatal]
  - Hypersensitivity [Fatal]
  - Colitis ulcerative [Fatal]
  - Hepatic cirrhosis [Fatal]
  - Duodenal ulcer perforation [Fatal]
  - Fibromyalgia [Fatal]
  - Helicobacter infection [Fatal]
  - Pneumonia [Fatal]
  - Liver injury [Fatal]
  - Pericarditis [Fatal]
  - Retinitis [Fatal]
  - Ear infection [Fatal]
  - Osteoarthritis [Fatal]
  - Knee arthroplasty [Fatal]
  - Psoriatic arthropathy [Fatal]
  - Psoriasis [Fatal]
  - Rheumatic fever [Fatal]
  - Lupus vulgaris [Fatal]
  - Type 2 diabetes mellitus [Fatal]
  - Irritable bowel syndrome [Fatal]
  - Sleep disorder due to general medical condition, insomnia type [Fatal]
  - Nasopharyngitis [Fatal]
  - Pancreatitis [Fatal]
  - Muscle injury [Fatal]
  - Asthma [Fatal]
  - Deep vein thrombosis postoperative [Fatal]
  - Hip arthroplasty [Fatal]
  - Road traffic accident [Fatal]
  - Delirium [Fatal]
  - Depression [Fatal]
  - Live birth [Fatal]
  - Wound infection [Fatal]
  - Migraine [Fatal]
  - Tachycardia [Fatal]
  - Breast cancer stage III [Fatal]
  - Pulmonary fibrosis [Fatal]
  - Anxiety [Fatal]
  - Amnesia [Fatal]
  - Sciatica [Fatal]
  - Drug intolerance [Fatal]
  - Folliculitis [Fatal]
  - Sinusitis [Fatal]
  - Death neonatal [Fatal]
  - Eye injury [Fatal]
  - Epilepsy [Fatal]
  - Rectal haemorrhage [Fatal]
  - Contraindicated product administered [Fatal]
  - Underdose [Fatal]
  - Drug ineffective [Fatal]
  - Prescribed underdose [Fatal]
  - Off label use [Fatal]
  - Prescribed overdose [Fatal]
  - Medication error [Fatal]
  - Exposure during pregnancy [Fatal]
  - Product quality issue [Unknown]
